FAERS Safety Report 4824723-5 (Version None)
Quarter: 2005Q4

REPORT INFORMATION
  Report Type: 
  Country: None (occurrence: None)
  Receive Date: 20051110
  Receipt Date: 20050811
  Transmission Date: 20060501
  Serious: Yes (Hospitalization)
  Sender: FDA-Public Use
  Company Number: FR-BRISTOL-MYERS SQUIBB COMPANY-13075098

PATIENT
  Age: 61 Year
  Sex: Male

DRUGS (4)
  1. GLUCOPHAGE [Suspect]
     Route: 048
  2. VASTEN [Suspect]
     Route: 048
  3. ORACILLIN [Suspect]
  4. BETASERC [Suspect]
     Route: 048
     Dates: start: 20050623, end: 20050701

REACTIONS (1)
  - THROMBOCYTOPENIA [None]
